FAERS Safety Report 7655819-0 (Version None)
Quarter: 2011Q3

REPORT INFORMATION
  Report Type: 
  Country: None (occurrence: None)
  Receive Date: 20110729
  Receipt Date: 20110718
  Transmission Date: 20111222
  Serious: Yes (Other)
  Sender: FDA-Public Use
  Company Number: IL-ACCORD-010049

PATIENT

DRUGS (2)
  1. CLONAZEPAM [Suspect]
     Dosage: TRANSPLACENTAL
     Route: 064
  2. VALPROATE SODIUM [Suspect]
     Dosage: TRANSPLACENTAL
     Route: 064

REACTIONS (3)
  - HYPOSPADIAS [None]
  - DEVELOPMENTAL DELAY [None]
  - MATERNAL DRUGS AFFECTING FOETUS [None]
